FAERS Safety Report 4374225-8 (Version None)
Quarter: 2004Q2

REPORT INFORMATION
  Report Type: 
  Country: None (occurrence: None)
  Receive Date: 20040603
  Receipt Date: 20040517
  Transmission Date: 20050107
  Serious: Yes (Death)
  Sender: FDA-Public Use
  Company Number: AU_040507707

PATIENT
  Sex: Female

DRUGS (2)
  1. EVISTA [Suspect]
     Indication: BONE DENSITY DECREASED
     Dosage: 60 MG DAY
  2. PLACEBO [Concomitant]

REACTIONS (1)
  - SUDDEN DEATH [None]
